FAERS Safety Report 17765391 (Version 1)
Quarter: 2020Q2

REPORT INFORMATION
  Report Type: Spontaneous
  Country: US (occurrence: US)
  Receive Date: 20200511
  Receipt Date: 20200511
  Transmission Date: 20200714
  Serious: No
  Sender: FDA-Public Use
  Company Number: US-PFIZER INC-2020186418

PATIENT
  Age: 53 Year
  Sex: Male
  Weight: 86.18 kg

DRUGS (5)
  1. LYRICA [Suspect]
     Active Substance: PREGABALIN
     Indication: SEIZURE
     Dosage: 200 MG
  2. LYRICA [Suspect]
     Active Substance: PREGABALIN
     Indication: EPILEPSY
     Dosage: 100 MG, 2X/DAY
     Route: 048
  3. CARBAMAZEPINE. [Suspect]
     Active Substance: CARBAMAZEPINE
  4. TEGRETOL [Suspect]
     Active Substance: CARBAMAZEPINE
     Indication: SEIZURE
     Dosage: UNK(HE IS STILL ON TEGRETOL, BUT NOT THE SAME DOSE)
  5. LYRICA [Suspect]
     Active Substance: PREGABALIN
     Dosage: 300 MG

REACTIONS (1)
  - Drug ineffective [Unknown]
